FAERS Safety Report 18019863 (Version 1)
Quarter: 2020Q3

REPORT INFORMATION
  Report Type: Spontaneous
  Country: US (occurrence: US)
  Receive Date: 20200714
  Receipt Date: 20200714
  Transmission Date: 20201103
  Serious: No
  Sender: FDA-Public Use
  Company Number: US-PFIZER INC-2018531281

PATIENT
  Age: 73 Year
  Sex: Female
  Weight: 117.91 kg

DRUGS (4)
  1. VFEND [Suspect]
     Active Substance: VORICONAZOLE
     Dosage: 250 MG, 2X/DAY [50 MG TABLET PO TWO TIMES A DAY] IN ADDITION TO 200 MG]/ 250 MG BID (TWICE A DAY)
     Route: 048
  2. VFEND [Suspect]
     Active Substance: VORICONAZOLE
     Dosage: 200 MG, 2X/DAY
     Route: 048
     Dates: start: 201901
  3. VFEND [Suspect]
     Active Substance: VORICONAZOLE
     Indication: FUNGAL INFECTION
     Dosage: 400 MG, 2X/DAY (TWICE A DAY)
  4. VFEND [Suspect]
     Active Substance: VORICONAZOLE
     Dosage: 50 MG, 2X/DAY
     Route: 048

REACTIONS (2)
  - Prescribed overdose [Unknown]
  - Dizziness [Unknown]
